FAERS Safety Report 14525612 (Version 1)
Quarter: 2018Q1

REPORT INFORMATION
  Report Type: Spontaneous
  Country: CA (occurrence: CA)
  Receive Date: 20180211
  Receipt Date: 20180211
  Transmission Date: 20180509
  Serious: Yes (Life-Threatening)
  Sender: FDA-Public Use
  Company Number: None

PATIENT
  Age: 40 Year
  Sex: Female
  Weight: 54 kg

DRUGS (5)
  1. APO-PAROXETINE [Suspect]
     Active Substance: PAROXETINE
     Indication: SOCIAL ANXIETY DISORDER
     Route: 048
     Dates: end: 20161209
  2. APO-PAROXETINE [Suspect]
     Active Substance: PAROXETINE
     Indication: GENERALISED ANXIETY DISORDER
     Route: 048
     Dates: end: 20161209
  3. PAROXETINE. [Concomitant]
     Active Substance: PAROXETINE
  4. APO-PAROXETINE [Suspect]
     Active Substance: PAROXETINE
     Indication: DEPRESSION
     Route: 048
     Dates: end: 20161209
  5. VITAMINS [Concomitant]
     Active Substance: VITAMINS

REACTIONS (31)
  - Panic attack [None]
  - Dehydration [None]
  - Sleep disorder [None]
  - Depersonalisation/derealisation disorder [None]
  - Feeling abnormal [None]
  - Emotional disorder [None]
  - Blepharospasm [None]
  - Vision blurred [None]
  - Palpitations [None]
  - Anxiety [None]
  - Dissociation [None]
  - Nausea [None]
  - Chills [None]
  - Derealisation [None]
  - Disorientation [None]
  - Visual field defect [None]
  - Agitation [None]
  - Confusional state [None]
  - Drug withdrawal syndrome [None]
  - Photophobia [None]
  - Tremor [None]
  - Faeces discoloured [None]
  - Pyrexia [None]
  - Irritability [None]
  - Throat tightness [None]
  - Chest discomfort [None]
  - Discomfort [None]
  - Decreased appetite [None]
  - Post-traumatic stress disorder [None]
  - Akathisia [None]
  - Head discomfort [None]

NARRATIVE: CASE EVENT DATE: 20161226
